FAERS Safety Report 9213373 (Version 1)
Quarter: 2013Q2

REPORT INFORMATION
  Report Type: Spontaneous
  Country: BR (occurrence: BR)
  Receive Date: 20130405
  Receipt Date: 20130405
  Transmission Date: 20140414
  Serious: Yes (Other)
  Sender: FDA-Public Use
  Company Number: PHHY2013BR032747

PATIENT
  Sex: Male
  Weight: 68 kg

DRUGS (3)
  1. ACLASTA [Suspect]
     Indication: OSTEOPOROSIS
     Dosage: 5 MG, UNK
     Route: 042
     Dates: start: 2012
  2. DIOVAN [Concomitant]
  3. CALCIUM D3                         /01483701/ [Concomitant]

REACTIONS (2)
  - Hydrocephalus [Not Recovered/Not Resolved]
  - Gait disturbance [Not Recovered/Not Resolved]
